FAERS Safety Report 21411856 (Version 2)
Quarter: 2022Q4

REPORT INFORMATION
  Report Type: Spontaneous
  Country: US (occurrence: US)
  Receive Date: 20221005
  Receipt Date: 20221104
  Transmission Date: 20230113
  Serious: Yes (Hospitalization)
  Sender: FDA-Public Use
  Company Number: US-PFIZER INC-PV202200075046

PATIENT
  Age: 18 Year
  Sex: Male
  Weight: 61.6 kg

DRUGS (5)
  1. PAXLOVID [Interacting]
     Active Substance: NIRMATRELVIR\RITONAVIR
     Indication: COVID-19 treatment
     Dosage: 300 MG, 2X/DAY
     Route: 048
     Dates: start: 20220925, end: 20220926
  2. TACROLIMUS [Interacting]
     Active Substance: TACROLIMUS
     Indication: Renal transplant
     Dosage: UNK
     Dates: start: 20190804
  3. PREDNISONE [Concomitant]
     Active Substance: PREDNISONE
     Indication: Renal transplant
     Dosage: UNK
     Dates: start: 20190804
  4. MYFORTIC [Concomitant]
     Active Substance: MYCOPHENOLATE SODIUM
     Indication: Renal transplant
     Dosage: UNK
     Dates: start: 20190804
  5. CELLCEPT [Concomitant]
     Active Substance: MYCOPHENOLATE MOFETIL
     Indication: Renal transplant

REACTIONS (7)
  - Acute kidney injury [Unknown]
  - Drug interaction [Unknown]
  - Diarrhoea [Unknown]
  - Graft complication [Unknown]
  - Immunosuppressant drug level increased [Unknown]
  - Blood creatinine increased [Unknown]
  - Dehydration [Unknown]

NARRATIVE: CASE EVENT DATE: 20220925
